FAERS Safety Report 7967409-0 (Version None)
Quarter: 2011Q4

REPORT INFORMATION
  Report Type: 
  Country: None (occurrence: None)
  Receive Date: 20111122
  Receipt Date: 20110715
  Transmission Date: 20120403
  Serious: No
  Sender: FDA-Public Use
  Company Number: PHHY2011US54797

PATIENT
  Age: 50 Year
  Sex: Male
  Weight: 74.3899 kg

DRUGS (2)
  1. GILENYA [Suspect]
     Dosage: 0.5 MG, DAILY, ORAL
     Route: 048
     Dates: start: 20110617
  2. GILENYA [Suspect]
     Indication: MULTIPLE SCLEROSIS
     Dosage: 1 DF, QD, ORAL
     Route: 048
     Dates: start: 20110617

REACTIONS (2)
  - PARAESTHESIA [None]
  - FATIGUE [None]
